FAERS Safety Report 21325098 (Version 1)
Quarter: 2022Q3

REPORT INFORMATION
  Report Type: Spontaneous
  Country: KR (occurrence: KR)
  Receive Date: 20220912
  Receipt Date: 20220912
  Transmission Date: 20221026
  Serious: Yes (Other)
  Sender: FDA-Public Use
  Company Number: KR-SCALL-2022-KR-000065

PATIENT
  Age: 27 Year
  Sex: Male

DRUGS (1)
  1. AVODART [Suspect]
     Active Substance: DUTASTERIDE
     Indication: Alopecia
     Dosage: 1 DF, QD (1 TO 6 MONTHS, 1 TABLET A DAY AT 2 PM); UNK, 6 TO 18 MONTHS: 1 TABLET EVERY 2 DAYS AT 2PM;
     Route: 065
     Dates: start: 2019

REACTIONS (4)
  - Papillary thyroid cancer [Unknown]
  - Metastases to lymph nodes [Unknown]
  - Erectile dysfunction [Unknown]
  - Weight increased [Unknown]

NARRATIVE: CASE EVENT DATE: 20210601
